FAERS Safety Report 15208818 (Version 1)
Quarter: 2018Q4

REPORT INFORMATION
  Report Type: Spontaneous
  Country: NL (occurrence: NL)
  Receive Date: 20180727
  Receipt Date: 20180727
  Transmission Date: 20190204
  Serious: Yes (Hospitalization)
  Sender: FDA-Public Use
  Company Number: NL-TEVA-2018-NL-930991

PATIENT
  Age: 49 Year
  Sex: Female

DRUGS (3)
  1. INSULINE LISPRO 100E/ML INJECTIEVLOEISTOF [Concomitant]
     Dates: start: 201512
  2. LYRICA 2D75MG [Concomitant]
     Dosage: 2D75MG
  3. TERBINAFINE TABLET, 250 MG (MILLIGRAM [Suspect]
     Active Substance: TERBINAFINE
     Indication: ONYCHOMYCOSIS
     Route: 065
     Dates: start: 20180530, end: 20180621

REACTIONS (4)
  - Mobility decreased [Unknown]
  - Urticaria [Unknown]
  - Pruritus [Unknown]
  - Joint swelling [Unknown]

NARRATIVE: CASE EVENT DATE: 20180621
